FAERS Safety Report 9318365 (Version 1)
Quarter: 2013Q2

REPORT INFORMATION
  Report Type: Spontaneous
  Country: US (occurrence: US)
  Receive Date: 20130530
  Receipt Date: 20130530
  Transmission Date: 20140414
  Serious: No
  Sender: FDA-Public Use
  Company Number: US-GLAXOSMITHKLINE-A1012481A

PATIENT
  Age: 68 Year
  Sex: Female

DRUGS (6)
  1. VENTOLIN [Suspect]
     Indication: BRONCHITIS
     Dosage: 2PUFF FOUR TIMES PER DAY
     Route: 055
     Dates: start: 20130130
  2. Z PACK [Concomitant]
  3. PREDNISONE [Concomitant]
  4. TUSSIN COUGH [Concomitant]
  5. HYDROCODONE [Concomitant]
     Indication: COUGH
  6. ATENOLOL [Concomitant]

REACTIONS (7)
  - Dyspnoea [Unknown]
  - Chest discomfort [Unknown]
  - Wheezing [Unknown]
  - Hypopnoea [Unknown]
  - Chest discomfort [Unknown]
  - Obstructive airways disorder [Unknown]
  - Wrong technique in drug usage process [Unknown]
